FAERS Safety Report 9190497 (Version 1)
Quarter: 2013Q1

REPORT INFORMATION
  Report Type: Spontaneous
  Country: US (occurrence: US)
  Receive Date: 20130326
  Receipt Date: 20130326
  Transmission Date: 20140127
  Serious: Yes (Hospitalization)
  Sender: FDA-Public Use
  Company Number: US-BAYER-2013-035764

PATIENT
  Age: 54 Year
  Sex: Female

DRUGS (9)
  1. BEYAZ [Suspect]
     Indication: MENSTRUAL CYCLE MANAGEMENT
  2. ASPIRIN [Concomitant]
  3. VITAMIN D3 [Concomitant]
  4. FISH OIL [Concomitant]
  5. LISINOPRIL [Concomitant]
  6. METFORMIN [Concomitant]
  7. METOPROLOL [Concomitant]
  8. OMEPRAZOLE [Concomitant]
  9. COENZYME Q10 [Concomitant]

REACTIONS (1)
  - Pulmonary embolism [None]
